FAERS Safety Report 5784230-2 (Version None)
Quarter: 2008Q2

REPORT INFORMATION
  Report Type: 
  Country: None (occurrence: None)
  Receive Date: 20080624
  Receipt Date: 20070522
  Transmission Date: 20081010
  Serious: No
  Sender: FDA-Public Use
  Company Number: US-ASTRAZENECA-2007UW12623

PATIENT
  Age: 76 Year
  Sex: Male
  Weight: 54.9 kg

DRUGS (7)
  1. PULMICORT [Suspect]
     Indication: PNEUMONIA
     Route: 055
  2. PULMICORT [Suspect]
     Indication: CHRONIC OBSTRUCTIVE PULMONARY DISEASE
     Route: 055
  3. ASPIRIN [Concomitant]
  4. COREG [Concomitant]
  5. PLAVIX [Concomitant]
  6. VALIUM [Concomitant]
  7. ANTIBIOTIC [Concomitant]

REACTIONS (2)
  - DRY MOUTH [None]
  - LIP DRY [None]
